FAERS Safety Report 4929001-1 (Version None)
Quarter: 2006Q1

REPORT INFORMATION
  Report Type: 
  Country: None (occurrence: None)
  Receive Date: 20060301
  Receipt Date: 20060223
  Transmission Date: 20060701
  Serious: Yes (Other)
  Sender: FDA-Public Use
  Company Number: 2006AP00927

PATIENT
  Age: 961 Month
  Sex: Female
  Weight: 40.9 kg

DRUGS (1)
  1. ARIMIDEX [Suspect]
     Indication: BREAST CANCER
     Route: 048
     Dates: start: 20051221, end: 20060217

REACTIONS (2)
  - DYSARTHRIA [None]
  - DYSPHAGIA [None]
